FAERS Safety Report 10257198 (Version 1)
Quarter: 2014Q2

REPORT INFORMATION
  Report Type: Spontaneous
  Country: JP (occurrence: None)
  Receive Date: 20140620
  Receipt Date: 20140620
  Transmission Date: 20141212
  Serious: Yes (Hospitalization)
  Sender: FDA-Public Use
  Company Number: 2013TJP004302

PATIENT
  Age: 78 Year
  Sex: Female
  Weight: 51.3 kg

DRUGS (6)
  1. TAKEPRON OD TABLETS 15 (LANSOPRAZOLE) ORODISPERSIBLE TABLET, 15 MG [Suspect]
     Indication: PROPHYLAXIS AGAINST GASTROINTESTINAL ULCER
     Route: 048
     Dates: start: 201101, end: 20110405
  2. VOLTAREN /00372302/ (DICLOFENAC SODIUM) [Concomitant]
  3. CALBLOCK (AZELNIDIPINE) [Concomitant]
  4. LOCHOL /01224502/ (FLUVASTATIN SODIUM) [Concomitant]
  5. BONALON (ALENDRONATE SODIUM) [Concomitant]
  6. HALCION (TRIAZOLAM) [Concomitant]

REACTIONS (2)
  - Colitis microscopic [None]
  - Hypokalaemia [None]
